FAERS Safety Report 16832274 (Version 1)
Quarter: 2019Q3

REPORT INFORMATION
  Report Type: Spontaneous
  Country: US (occurrence: US)
  Receive Date: 20190730
  Receipt Date: 20190730
  Transmission Date: 20191005
  Serious: No
  Sender: FDA-Public Use
  Company Number: None

PATIENT
  Age: 63 Year
  Sex: Female

DRUGS (1)
  1. SILDENAFIL TAB 20 MG [Suspect]
     Active Substance: SILDENAFIL
     Indication: PULMONARY HYPERTENSION
     Route: 048
     Dates: start: 201905

REACTIONS (4)
  - Pulmonary arterial hypertension [None]
  - Intentional product use issue [None]
  - Condition aggravated [None]
  - Insurance issue [None]

NARRATIVE: CASE EVENT DATE: 20190730
